FAERS Safety Report 7575406-2 (Version None)
Quarter: 2011Q2

REPORT INFORMATION
  Report Type: 
  Country: None (occurrence: None)
  Receive Date: 20110627
  Receipt Date: 20110622
  Transmission Date: 20111010
  Serious: Yes (Other)
  Sender: FDA-Public Use
  Company Number: PT-PFIZER INC-2011131795

PATIENT
  Age: 63 Year
  Sex: Male
  Weight: 97 kg

DRUGS (6)
  1. ENALAPRIL MALEATE AND HYDROCHLOROTHIAZIDE [Concomitant]
     Indication: HYPERTENSION
     Dosage: 20 + 12.5 MG, 1X/DAY
     Route: 048
     Dates: start: 20101117
  2. FOLICIL [Concomitant]
     Indication: ANAEMIA
     Route: 048
     Dates: start: 20101018
  3. SUTENT [Suspect]
     Indication: RENAL CELL CARCINOMA
     Dosage: 50 MG, 1X/DAY
     Route: 048
     Dates: start: 20091218, end: 20100329
  4. SUTENT [Suspect]
     Dosage: 37.5 MG, 1X/DAY
     Route: 048
     Dates: start: 20100330, end: 20110401
  5. PARACETAMOL [Concomitant]
     Indication: ANALGESIC THERAPY
     Route: 048
     Dates: start: 20100606
  6. DILTIAZEM HYDROCHLORIDE [Concomitant]
     Indication: HYPERTENSION
     Route: 048
     Dates: start: 20101117

REACTIONS (5)
  - VOMITING [None]
  - HEPATOTOXICITY [None]
  - MALLORY-WEISS SYNDROME [None]
  - HAEMATEMESIS [None]
  - OESOPHAGITIS [None]
